FAERS Safety Report 15110819 (Version 1)
Quarter: 2018Q2

REPORT INFORMATION
  Report Type: Spontaneous
  Country: US (occurrence: US)
  Receive Date: 20180612
  Receipt Date: 20180612
  Transmission Date: 20180711
  Serious: Yes (Hospitalization)
  Sender: FDA-Public Use
  Company Number: None

PATIENT
  Age: 77 Year
  Sex: Female
  Weight: 65.8 kg

DRUGS (12)
  1. GLIPIZIDE. [Suspect]
     Active Substance: GLIPIZIDE
     Indication: DIABETES MELLITUS
     Dosage: CHRONIC
     Route: 048
  2. VITD3 [Concomitant]
  3. ASPIRIN. [Concomitant]
     Active Substance: ASPIRIN
  4. VITB12 [Concomitant]
  5. ROCALTROL [Concomitant]
     Active Substance: CALCITRIOL
  6. PLAVIX [Concomitant]
     Active Substance: CLOPIDOGREL BISULFATE
  7. FE [Concomitant]
     Active Substance: IRON
  8. LASIX [Concomitant]
     Active Substance: FUROSEMIDE
  9. LIPITOR [Concomitant]
     Active Substance: ATORVASTATIN CALCIUM
  10. NORVASC [Concomitant]
     Active Substance: AMLODIPINE BESYLATE
  11. KEFLEX [Concomitant]
     Active Substance: CEPHALEXIN
  12. LOFRIBA [Concomitant]

REACTIONS (1)
  - Hypoglycaemia [None]

NARRATIVE: CASE EVENT DATE: 20180303
